FAERS Safety Report 23638140 (Version 1)
Quarter: 2024Q1

REPORT INFORMATION
  Report Type: Spontaneous
  Country: CH (occurrence: CH)
  Receive Date: 20240315
  Receipt Date: 20240315
  Transmission Date: 20240410
  Serious: Yes (Death)
  Sender: FDA-Public Use
  Company Number: CH-SERVIER-S23012442

PATIENT
  Age: 45 Year
  Sex: Female

DRUGS (2)
  1. LONSURF [Suspect]
     Active Substance: TIPIRACIL HYDROCHLORIDE\TRIFLURIDINE
     Indication: Pancreatic carcinoma metastatic
     Dosage: 35 MG/M2, ON DAY 1-5 AND 8-12 OF EACH 28-DAY CYCLE
     Route: 048
     Dates: start: 20231024, end: 2024
  2. ONIVYDE [Suspect]
     Active Substance: IRINOTECAN HYDROCHLORIDE
     Indication: Pancreatic carcinoma metastatic
     Dosage: 70 MG/M2, EVERY 2 WEEKS; SOLUTION FOR INFUSION?DAILY DOSE: 70 MILLIGRAM(S)/SQ. METER
     Route: 065
     Dates: start: 20231024, end: 20231107

REACTIONS (5)
  - Disease progression [Fatal]
  - Product use issue [Recovered/Resolved]
  - Product use issue [Recovered/Resolved]
  - Large intestine infection [Unknown]
  - Off label use [Unknown]

NARRATIVE: CASE EVENT DATE: 20231024
